FAERS Safety Report 18534768 (Version 2)
Quarter: 2020Q4

REPORT INFORMATION
  Report Type: Spontaneous
  Country: FR (occurrence: FR)
  Receive Date: 20201123
  Receipt Date: 20201223
  Transmission Date: 20210114
  Serious: Yes (Other)
  Sender: FDA-Public Use
  Company Number: FR-GRUNENTHAL-2020-107490

PATIENT
  Age: 43 Year
  Sex: Female

DRUGS (1)
  1. QUTENZA [Suspect]
     Active Substance: CAPSAICIN
     Indication: NEURALGIA
     Dosage: 0.5 DOSAGE FORM, 1/DAY
     Route: 003
     Dates: start: 20201110, end: 20201110

REACTIONS (4)
  - Application site burn [Not Recovered/Not Resolved]
  - Emotional distress [Unknown]
  - Application site pain [Not Recovered/Not Resolved]
  - Application site vesicles [Not Recovered/Not Resolved]

NARRATIVE: CASE EVENT DATE: 20201110
